FAERS Safety Report 17064304 (Version 1)
Quarter: 2019Q4

REPORT INFORMATION
  Report Type: Spontaneous
  Country: US (occurrence: US)
  Receive Date: 20191023
  Receipt Date: 20191023
  Transmission Date: 20200122
  Serious: No
  Sender: FDA-Public Use
  Company Number: None

PATIENT
  Age: 74 Year
  Sex: Female
  Weight: 62.6 kg

DRUGS (10)
  1. MONTELUKAST [Concomitant]
     Active Substance: MONTELUKAST SODIUM
  2. HYDROCHLOROTHIAZIDE. [Concomitant]
     Active Substance: HYDROCHLOROTHIAZIDE
  3. AMLOPIPINE [Concomitant]
  4. BENAZEPRIL HCL [Concomitant]
     Active Substance: BENAZEPRIL HYDROCHLORIDE
  5. ANASTROZOLE. [Suspect]
     Active Substance: ANASTROZOLE
     Indication: BREAST CANCER
     Dosage: ?          QUANTITY:1 DF DOSAGE FORM;?
     Route: 048
     Dates: start: 20190417, end: 20190424
  6. VIT. D (OSCAL CALCIUM + D3) [Concomitant]
  7. FISH OIL [Concomitant]
     Active Substance: FISH OIL
  8. MELATONIN [Concomitant]
     Active Substance: MELATONIN
  9. OSCAL [Concomitant]
     Active Substance: CALCIUM CARBONATE
  10. OSTEO BI FLEX [Concomitant]

REACTIONS (4)
  - Cough [None]
  - Back pain [None]
  - Flank pain [None]
  - Dyspnoea [None]

NARRATIVE: CASE EVENT DATE: 20190418
